FAERS Safety Report 4427849-3 (Version None)
Quarter: 2004Q3

REPORT INFORMATION
  Report Type: 
  Country: None (occurrence: None)
  Receive Date: 20040812
  Receipt Date: 20040809
  Transmission Date: 20050211
  Serious: Yes (Hospitalization)
  Sender: FDA-Public Use
  Company Number: 200410344BFR

PATIENT
  Age: 56 Year
  Sex: Male

DRUGS (13)
  1. GLUCOR (ACARBOSE) [Suspect]
     Indication: DIABETES MELLITUS NON-INSULIN-DEPENDENT
     Dosage: 150 MG, TOTAL DAILY, ORAL
     Route: 048
  2. GLUCOPHAGE [Suspect]
     Indication: DIABETES MELLITUS NON-INSULIN-DEPENDENT
     Dosage: 3000 MG, TOTAL DAILY, ORAL
     Route: 048
  3. OFLOXACIN [Suspect]
     Indication: INFECTED SKIN ULCER
     Dosage: ORAL
     Route: 048
     Dates: start: 20040426, end: 20040516
  4. OFLOXACIN [Suspect]
     Indication: SUPERINFECTION
     Dosage: ORAL
     Route: 048
     Dates: start: 20040426, end: 20040516
  5. PRAVASTATIN [Suspect]
     Indication: DYSLIPIDAEMIA
     Dosage: 40 MG, TOTAL DAILY, ORAL
     Route: 048
  6. STILNOX (ZOLPIDEM) [Suspect]
     Dosage: QD, ORAL
     Route: 048
  7. RAMIPRIL [Suspect]
     Indication: HYPERTENSION
     Dosage: 10 MG, TOTAL DAILY, ORAL
     Route: 048
  8. ZYLORIC [Concomitant]
  9. ASPIRIN [Concomitant]
  10. TRAMADOL HCL [Concomitant]
  11. TANAKAN [Concomitant]
  12. RIFADIN [Concomitant]
  13. PYOSTACIN [Concomitant]

REACTIONS (7)
  - CONDITION AGGRAVATED [None]
  - DIABETIC FOOT [None]
  - OSTEITIS [None]
  - PROTEINURIA [None]
  - STAPHYLOCOCCAL INFECTION [None]
  - SUPERINFECTION [None]
  - VASCULAR PURPURA [None]
